FAERS Safety Report 10050412 (Version 3)
Quarter: 2015Q1

REPORT INFORMATION
  Report Type: Report from Study
  Country: US (occurrence: US)
  Receive Date: 20140401
  Receipt Date: 20150114
  Transmission Date: 20150720
  Serious: Yes (Hospitalization, Other)
  Sender: FDA-Public Use
  Company Number: US-ACTELION-A-US2014-96466

PATIENT
  Age: 63 Year
  Sex: Female

DRUGS (7)
  1. PREDNISONE. [Suspect]
     Active Substance: PREDNISONE
     Indication: PULMONARY ARTERIAL HYPERTENSION
     Dosage: UNK
     Route: 065
     Dates: start: 2007
  2. ABILIFY [Concomitant]
     Active Substance: ARIPIPRAZOLE
  3. WELLBUTRIN [Concomitant]
     Active Substance: BUPROPION HYDROCHLORIDE
     Dosage: UNK
     Dates: start: 2012, end: 2014
  4. TRACLEER [Suspect]
     Active Substance: BOSENTAN\BOSENTAN MONOHYDRATE
     Indication: PULMONARY ARTERIAL HYPERTENSION
     Dosage: 125 MG, BID
     Route: 048
     Dates: start: 2007
  5. PAXIL [Suspect]
     Active Substance: PAROXETINE HYDROCHLORIDE
     Indication: DEPRESSION
     Dosage: UNK
     Route: 065
     Dates: end: 2014
  6. PROZAC [Concomitant]
     Active Substance: FLUOXETINE HYDROCHLORIDE
  7. METFORMIN [Concomitant]
     Active Substance: METFORMIN HYDROCHLORIDE
     Dosage: UNK

REACTIONS (23)
  - Memory impairment [Not Recovered/Not Resolved]
  - Visual impairment [Recovered/Resolved]
  - Nausea [Unknown]
  - Dizziness [Unknown]
  - Apraxia [Unknown]
  - Transient ischaemic attack [Recovered/Resolved]
  - Thinking abnormal [Unknown]
  - Cholecystectomy [Unknown]
  - Depression [Not Recovered/Not Resolved]
  - Mental impairment [Recovered/Resolved]
  - Cholelithiasis [Recovered/Resolved]
  - Agoraphobia [Not Recovered/Not Resolved]
  - Mood altered [Recovered/Resolved]
  - Blindness [Unknown]
  - Dysstasia [Unknown]
  - Oxygen saturation decreased [Unknown]
  - Tremor [Recovered/Resolved]
  - Pain [Unknown]
  - Infection [Not Recovered/Not Resolved]
  - No therapeutic response [Recovered/Resolved]
  - Speech disorder [Recovered/Resolved]
  - Weight increased [Not Recovered/Not Resolved]
  - Dyspnoea [Unknown]

NARRATIVE: CASE EVENT DATE: 2007
